FAERS Safety Report 9251515 (Version 3)
Quarter: 2013Q2

REPORT INFORMATION
  Report Type: Spontaneous
  Country: US (occurrence: US)
  Receive Date: 20130424
  Receipt Date: 20130619
  Transmission Date: 20140414
  Serious: Yes (Death)
  Sender: FDA-Public Use
  Company Number: US-LUNDBECK-DKLU1090410

PATIENT
  Age: 63 Year
  Sex: Male

DRUGS (3)
  1. SABRIL (TABLET) [Suspect]
     Indication: GRAND MAL CONVULSION
     Route: 048
     Dates: start: 20130326
  2. SABRIL (TABLET) [Suspect]
     Indication: STATUS EPILEPTICUS
  3. SABRIL (TABLET) [Suspect]
     Indication: COMPLEX PARTIAL SEIZURES

REACTIONS (1)
  - Creutzfeldt-Jakob disease [Fatal]
